FAERS Safety Report 17196881 (Version 2)
Quarter: 2020Q1

REPORT INFORMATION
  Report Type: Not Available
  Country: US (occurrence: US)
  Receive Date: 20191224
  Receipt Date: 20200110
  Transmission Date: 20200409
  Serious: Yes (Life-Threatening, Other)
  Sender: FDA-Public Use
  Company Number: US-NEUROCRINE BIOSCIENCES INC.-2019NBI03810

PATIENT
  Age: 58 Year
  Sex: Female

DRUGS (3)
  1. ABILIFY [Concomitant]
     Active Substance: ARIPIPRAZOLE
     Indication: SCHIZOAFFECTIVE DISORDER
     Route: 048
     Dates: start: 2017
  2. TRILEPTAL [Concomitant]
     Active Substance: OXCARBAZEPINE
     Indication: MOOD ALTERED
     Route: 048
     Dates: start: 20191015
  3. INGREZZA [Suspect]
     Active Substance: VALBENAZINE
     Indication: DYSKINESIA
     Route: 048
     Dates: start: 201911, end: 20191127

REACTIONS (2)
  - Tremor [Recovered/Resolved]
  - Anaphylactic reaction [Recovered/Resolved]

NARRATIVE: CASE EVENT DATE: 20191127
